FAERS Safety Report 13270395 (Version 1)
Quarter: 2017Q1

REPORT INFORMATION
  Report Type: Spontaneous
  Country: ES (occurrence: ES)
  Receive Date: 20170224
  Receipt Date: 20170224
  Transmission Date: 20170428
  Serious: Yes (Other)
  Sender: FDA-Public Use
  Company Number: ES-JNJFOC-20170222832

PATIENT

DRUGS (1)
  1. ABIRATERONE ACETATE [Suspect]
     Active Substance: ABIRATERONE ACETATE
     Indication: PROSTATE CANCER METASTATIC
     Route: 048

REACTIONS (12)
  - Fluid retention [Unknown]
  - Hepatotoxicity [Unknown]
  - Intestinal perforation [Unknown]
  - Asthenia [Unknown]
  - Hypokalaemia [Unknown]
  - Diarrhoea [Unknown]
  - Constipation [Unknown]
  - Hyperkalaemia [Unknown]
  - Hypertension [Unknown]
  - Hyperglycaemia [Unknown]
  - Thrombocytopenia [Unknown]
  - Muscle spasms [Unknown]
